FAERS Safety Report 23968174 (Version 1)
Quarter: 2024Q2

REPORT INFORMATION
  Report Type: Spontaneous
  Country: US (occurrence: US)
  Receive Date: 20240612
  Receipt Date: 20240612
  Transmission Date: 20240716
  Serious: No
  Sender: FDA-Public Use
  Company Number: US-PERRIGO-23US011847

PATIENT
  Age: 50 Year
  Sex: Female
  Weight: 126.98 kg

DRUGS (2)
  1. DICLOFENAC SODIUM [Suspect]
     Active Substance: DICLOFENAC\DICLOFENAC SODIUM
     Indication: Musculoskeletal discomfort
     Dosage: UNKNOWN, BID
     Route: 061
     Dates: start: 20231002, end: 20231008
  2. DICLOFENAC SODIUM [Suspect]
     Active Substance: DICLOFENAC\DICLOFENAC SODIUM
     Indication: Arthritis
     Dosage: UNKNOWN,BID
     Route: 061
     Dates: start: 20231002, end: 20231008

REACTIONS (6)
  - Drug effect less than expected [Unknown]
  - Off label use [Recovered/Resolved]
  - Product administered at inappropriate site [Recovered/Resolved]
  - Wrong technique in product usage process [Recovered/Resolved]
  - Incorrect dose administered [Recovered/Resolved]
  - Inappropriate schedule of product administration [Recovered/Resolved]

NARRATIVE: CASE EVENT DATE: 20231002
